FAERS Safety Report 4684083-X (Version None)
Quarter: 2005Q2

REPORT INFORMATION
  Report Type: 
  Country: None (occurrence: None)
  Receive Date: 20050531
  Receipt Date: 20050330
  Transmission Date: 20051028
  Serious: Yes (Hospitalization, Other)
  Sender: FDA-Public Use
  Company Number: US_0411107609

PATIENT
  Sex: Male
  Weight: 114 kg

DRUGS (8)
  1. ZYPREXA [Suspect]
     Dosage: 15 MG
  2. PROZAC [Suspect]
     Dosage: 30 MG/1 DAY
     Dates: start: 19990331, end: 20020530
  3. HUMULIN 70/30 [Suspect]
     Indication: DIABETES MELLITUS
     Dates: start: 20011205
  4. DEPAKOTE [Concomitant]
  5. MULTI-VITAMIN [Concomitant]
  6. ASPIRIN [Concomitant]
  7. CLONOPIN (CLONAZEPAM) [Concomitant]
  8. BUPROPION [Concomitant]

REACTIONS (11)
  - BLOOD PRESSURE INCREASED [None]
  - BUNDLE BRANCH BLOCK [None]
  - DIABETES MELLITUS [None]
  - DIABETIC KETOACIDOSIS [None]
  - ERECTILE DYSFUNCTION [None]
  - GYNAECOMASTIA [None]
  - HYPERGLYCAEMIA [None]
  - HYPOGLYCAEMIA [None]
  - OEDEMA PERIPHERAL [None]
  - PANCREATITIS [None]
  - SOMNOLENCE [None]
